FAERS Safety Report 10994062 (Version 1)
Quarter: 2015Q2

REPORT INFORMATION
  Report Type: Spontaneous
  Country: US (occurrence: None)
  Receive Date: 20150406
  Receipt Date: 20150406
  Transmission Date: 20150821
  Serious: No
  Sender: FDA-Public Use
  Company Number: None

PATIENT
  Age: 44 Year
  Sex: Female
  Weight: 95.26 kg

DRUGS (4)
  1. MIRENA [Suspect]
     Active Substance: LEVONORGESTREL
     Indication: MENSTRUATION IRREGULAR
     Dosage: 1 UID FOR 5 YEARS  1 EVERY 5 YEARS  VAGINAL
     Route: 067
     Dates: start: 20140901, end: 20150403
  2. SYNTHROID [Concomitant]
     Active Substance: LEVOTHYROXINE SODIUM
  3. ZYRTEC [Concomitant]
     Active Substance: CETIRIZINE HYDROCHLORIDE
  4. MIRENA [Suspect]
     Active Substance: LEVONORGESTREL
     Indication: MENORRHAGIA
     Dosage: 1 UID FOR 5 YEARS  1 EVERY 5 YEARS  VAGINAL
     Route: 067
     Dates: start: 20140901, end: 20150403

REACTIONS (6)
  - Vaginal haemorrhage [None]
  - Burning sensation [None]
  - Muscle spasms [None]
  - Pain of skin [None]
  - Pruritus [None]
  - Alopecia [None]

NARRATIVE: CASE EVENT DATE: 20150403
